FAERS Safety Report 6303973-5 (Version None)
Quarter: 2009Q3

REPORT INFORMATION
  Report Type: 
  Country: None (occurrence: None)
  Receive Date: 20090810
  Receipt Date: 20090729
  Transmission Date: 20100115
  Serious: Yes (Other)
  Sender: FDA-Public Use
  Company Number: US-PFIZER INC-2009249265

PATIENT
  Sex: Female
  Weight: 67.12 kg

DRUGS (5)
  1. CHANTIX [Suspect]
     Indication: SMOKING CESSATION THERAPY
     Route: 048
     Dates: start: 20090517, end: 20090520
  2. ALLEGRA [Concomitant]
     Dosage: UNK
     Route: 048
  3. CENTRUM SILVER [Concomitant]
     Dosage: UNK
     Route: 048
  4. ACETYLSALICYLIC ACID [Concomitant]
     Dosage: UNK
     Route: 048
  5. MINOCYCLINE HYDROCHLORIDE [Concomitant]
     Dosage: UNK
     Route: 048

REACTIONS (1)
  - VIOLENCE-RELATED SYMPTOM [None]
